FAERS Safety Report 10268166 (Version 3)
Quarter: 2014Q3

REPORT INFORMATION
  Report Type: Spontaneous
  Country: FR (occurrence: FR)
  Receive Date: 20140630
  Receipt Date: 20140707
  Transmission Date: 20150326
  Serious: Yes (Life-Threatening, Other)
  Sender: FDA-Public Use
  Company Number: FR-PFIZER INC-2014152630

PATIENT
  Age: 38 Year
  Sex: Female

DRUGS (2)
  1. PROPESS [Concomitant]
     Active Substance: DINOPROSTONE
     Indication: INDUCTION OF CERVIX RIPENING
     Dosage: 10 MG, UNK
     Route: 067
     Dates: start: 20140502, end: 20140503
  2. PROSTINE E2 [Suspect]
     Active Substance: DINOPROSTONE
     Indication: INDUCTION OF CERVIX RIPENING
     Dosage: 2 MG, UNK
     Route: 067
     Dates: start: 20140503, end: 20140503

REACTIONS (3)
  - Meconium in amniotic fluid [Unknown]
  - Incorrect dose administered [Recovered/Resolved]
  - Uterine hypertonus [Recovered/Resolved]

NARRATIVE: CASE EVENT DATE: 201405
